FAERS Safety Report 5631104-3 (Version None)
Quarter: 2008Q1

REPORT INFORMATION
  Report Type: 
  Country: None (occurrence: None)
  Receive Date: 20080219
  Receipt Date: 20080212
  Transmission Date: 20080703
  Serious: Yes (Other)
  Sender: FDA-Public Use
  Company Number: US-PFIZER INC-2008013184

PATIENT

DRUGS (1)
  1. GLIPIZIDE [Suspect]

REACTIONS (1)
  - BLOOD GLUCOSE INCREASED [None]
